FAERS Safety Report 6504292-4 (Version None)
Quarter: 2009Q4

REPORT INFORMATION
  Report Type: 
  Country: None (occurrence: None)
  Receive Date: 20091215
  Receipt Date: 20091203
  Transmission Date: 20100525
  Serious: Yes (Other)
  Sender: FDA-Public Use
  Company Number: 2009US004297

PATIENT
  Age: 24 Year
  Sex: Female

DRUGS (1)
  1. AMBISOME [Suspect]
     Indication: EVIDENCE BASED TREATMENT
     Dosage: UNK, IV NOS
     Route: 042
     Dates: start: 20090925, end: 20090925

REACTIONS (2)
  - DYSPNOEA [None]
  - THROAT TIGHTNESS [None]
